FAERS Safety Report 6520077-7 (Version None)
Quarter: 2009Q4

REPORT INFORMATION
  Report Type: 
  Country: None (occurrence: None)
  Receive Date: 20091229
  Receipt Date: 20091216
  Transmission Date: 20100525
  Serious: Yes (Hospitalization)
  Sender: FDA-Public Use
  Company Number: PHHY2009FR56639

PATIENT
  Sex: Female

DRUGS (18)
  1. NITRODERM [Suspect]
     Dosage: 15 MG DAILY
     Dates: end: 20090520
  2. CIBACEN [Suspect]
     Dosage: 5 MG DAILY
     Route: 048
     Dates: end: 20090526
  3. ALDACTONE [Suspect]
     Dosage: 25 MG DAILY
     Dates: end: 20090524
  4. LASILIX [Suspect]
     Dosage: 40 MG, BID
     Dates: end: 20090525
  5. DI-ANTALVIC [Suspect]
     Dosage: 3 DF DAILY
     Dates: end: 20090520
  6. ADANCOR [Suspect]
     Dosage: 20 MG, BID
  7. CORDARONE [Concomitant]
  8. KARDEGIC [Concomitant]
  9. KALEORID [Concomitant]
  10. AERIUS [Concomitant]
  11. PLAVIX [Concomitant]
  12. PARIET [Concomitant]
  13. BIPERIDYS [Concomitant]
  14. LEGALON [Concomitant]
  15. CACIT VITAMINE D3 [Concomitant]
  16. DAFLON (DIOSMIN) [Concomitant]
  17. EUPHYLLINE [Concomitant]
  18. PULMICORT [Concomitant]

REACTIONS (4)
  - FALL [None]
  - GENERAL PHYSICAL HEALTH DETERIORATION [None]
  - HYPOTENSION [None]
  - RENAL FAILURE [None]
